FAERS Safety Report 26163150 (Version 2)
Quarter: 2025Q4

REPORT INFORMATION
  Report Type: Spontaneous
  Country: BR (occurrence: BR)
  Receive Date: 20251216
  Receipt Date: 20251222
  Transmission Date: 20260118
  Serious: Yes (Other)
  Sender: SANDOZ
  Company Number: BR-002147023-NVSC2025BR170105

PATIENT
  Sex: Female
  Weight: 74 kg

DRUGS (4)
  1. ANASTROZOLE [Suspect]
     Active Substance: ANASTROZOLE
     Indication: Breast cancer metastatic
     Dosage: 1 DOSAGE FORM, QD (APPROXIMATELY 1  YEAR), TABLET
  2. KISQALI [Suspect]
     Active Substance: RIBOCICLIB SUCCINATE
     Indication: Breast cancer metastatic
     Dosage: 3 DOSAGE FORM, (TAKE 3 TABLETS DAILY FOR  21 DAYS, THEN TAKE A 7- DAY BREAK)  (APPROXIMATELY 1 YEAR)
  3. ATENOLOL [Concomitant]
     Active Substance: ATENOLOL
     Indication: Hypertension
     Dosage: 1 DOSAGE FORM, QD (ABOUT 3 YEARS AGO),  TABLET
  4. CHLOROQUINE [Concomitant]
     Active Substance: CHLOROQUINE
     Indication: Hypertension
     Dosage: 1 DOSAGE FORM, QD(TABLET, ABOUT 3 YEARS  AGO)

REACTIONS (2)
  - Peripheral swelling [Not Recovered/Not Resolved]
  - Memory impairment [Unknown]

NARRATIVE: CASE EVENT DATE: 20250101
